FAERS Safety Report 4326248-2 (Version None)
Quarter: 2004Q1

REPORT INFORMATION
  Report Type: 
  Country: None (occurrence: None)
  Receive Date: 20040329
  Receipt Date: 20040319
  Transmission Date: 20041129
  Serious: Yes (Hospitalization)
  Sender: FDA-Public Use
  Company Number: JP-MERCK-0403USA02101

PATIENT
  Age: 5 Year
  Sex: Female

DRUGS (4)
  1. AMOXICILLIN [Concomitant]
     Indication: STREPTOCOCCAL INFECTION
     Route: 065
  2. CARBOCYSTEINE [Suspect]
     Route: 048
  3. PERIACTIN [Suspect]
     Route: 048
  4. DOMPERIDONE [Concomitant]
     Route: 065

REACTIONS (2)
  - ERYTHEMA MULTIFORME [None]
  - STEVENS-JOHNSON SYNDROME [None]
